FAERS Safety Report 12945009 (Version 1)
Quarter: 2016Q4

REPORT INFORMATION
  Report Type: Spontaneous
  Country: US (occurrence: US)
  Receive Date: 20161115
  Receipt Date: 20161115
  Transmission Date: 20170207
  Serious: Yes (Death)
  Sender: FDA-Public Use
  Company Number: None

PATIENT
  Age: 96 Year
  Sex: Male

DRUGS (2)
  1. ELIGARD [Concomitant]
     Active Substance: LEUPROLIDE ACETATE
  2. TRELSTAR [Suspect]
     Active Substance: TRIPTORELIN PAMOATE
     Indication: PROSTATE CANCER
     Dosage: TRELSTAR MIXJECT SYS (ONE MJET) - INJ ONCE Q 6 MOS - IM
     Route: 030
     Dates: start: 20160127

REACTIONS (1)
  - Death [None]

NARRATIVE: CASE EVENT DATE: 201611
